FAERS Safety Report 6751179-8 (Version None)
Quarter: 2010Q2

REPORT INFORMATION
  Report Type: 
  Country: None (occurrence: None)
  Receive Date: 20100602
  Receipt Date: 20100519
  Transmission Date: 20101027
  Serious: Yes (Other)
  Sender: FDA-Public Use
  Company Number: NO-RANBAXY-2010RR-32540

PATIENT
  Sex: Female

DRUGS (3)
  1. ACYCLOVIR SODIUM [Suspect]
     Indication: HERPES ZOSTER
     Route: 048
     Dates: start: 20080213, end: 20080218
  2. SOBRIL [Concomitant]
     Route: 048
  3. IMOVANE [Concomitant]
     Route: 048

REACTIONS (2)
  - HALLUCINATION, AUDITORY [None]
  - SUDDEN HEARING LOSS [None]
